FAERS Safety Report 9758354 (Version 3)
Quarter: 2021Q4

REPORT INFORMATION
  Report Type: Report from Study
  Country: PL (occurrence: PL)
  Receive Date: 20131216
  Receipt Date: 20211011
  Transmission Date: 20220304
  Serious: Yes (Hospitalization)
  Sender: FDA-Public Use
  Company Number: PL-SHIRE-ALL1-2013-08583

PATIENT
  Sex: Male
  Weight: 20.2 kg

DRUGS (59)
  1. IDURSULFASE [Suspect]
     Active Substance: IDURSULFASE
     Indication: Mucopolysaccharidosis II
     Dosage: 9.5 MILLIGRAM, 1/WEEK
     Route: 041
     Dates: start: 20090927, end: 20110624
  2. IDURSULFASE [Suspect]
     Active Substance: IDURSULFASE
     Dosage: 9 MG, UNKNOWN
     Route: 041
     Dates: start: 20100318, end: 201106
  3. SPIRONOLACTONE [Concomitant]
     Active Substance: SPIRONOLACTONE
     Indication: Cardiovascular disorder
     Dosage: 12.5 MG, 1X/DAY:QD
     Route: 048
     Dates: start: 2011
  4. TRIMEBUTINE [Concomitant]
     Active Substance: TRIMEBUTINE
     Indication: Gastrointestinal disorder
     Dosage: UNK UNK, UNKNOWN
     Route: 065
     Dates: start: 20100701
  5. INHIBACE                           /00845401/ [Concomitant]
     Indication: Cardiovascular disorder
     Dosage: 0.25 MG, 1X/DAY:QD
     Route: 048
     Dates: start: 20090916
  6. PLEXXO [Concomitant]
     Indication: Nervous system disorder
     Dosage: 75 MG, 2X/DAY:BID
     Route: 048
     Dates: start: 20090916
  7. KEPPRA [Concomitant]
     Active Substance: LEVETIRACETAM
     Indication: Nervous system disorder
     Dosage: 250 MG, 2X/DAY:BID
     Route: 048
     Dates: start: 20090916
  8. RANIGAST [Concomitant]
     Indication: Gastrointestinal disorder
     Dosage: 50 MG, 2X/DAY:BID
     Route: 041
     Dates: start: 20120626, end: 201207
  9. ZINACEF [Concomitant]
     Active Substance: CEFUROXIME SODIUM
     Indication: Infection
     Dosage: 1 G, 2X/DAY:BID
     Route: 042
     Dates: start: 20120626, end: 201207
  10. FUROSEMIDE [Concomitant]
     Active Substance: FUROSEMIDE
     Indication: Cardiovascular disorder
     Dosage: UNK, UNKNOWN
     Route: 065
     Dates: start: 20120628, end: 2012
  11. SOPODORM                           /00634101/ [Concomitant]
     Indication: Sleep disorder
     Dosage: UNK, UNKNOWN
     Route: 065
     Dates: start: 20120628, end: 201206
  12. PERFALGAN [Concomitant]
     Active Substance: ACETAMINOPHEN
     Indication: Pain
     Dosage: UNK, UNKNOWN
     Route: 065
     Dates: start: 20120628, end: 201206
  13. PERFALGAN [Concomitant]
     Active Substance: ACETAMINOPHEN
     Dosage: UNK
     Dates: start: 20120630, end: 201207
  14. DEXAMETHASONE [Concomitant]
     Active Substance: DEXAMETHASONE
     Indication: Product used for unknown indication
     Dosage: UNK UNK, UNKNOWN
     Route: 065
     Dates: start: 20111217, end: 201112
  15. DEXAMETHASONE [Concomitant]
     Active Substance: DEXAMETHASONE
     Dosage: UNK, UNKNOWN
     Route: 065
     Dates: start: 20120628, end: 2012
  16. THEOPHYLLINE ANHYDROUS [Concomitant]
     Active Substance: THEOPHYLLINE ANHYDROUS
     Indication: Obstructive airways disorder
     Dosage: UNK, UNKNOWN
     Route: 065
     Dates: start: 20120628, end: 2012
  17. THEOPHYLLINE ANHYDROUS [Concomitant]
     Active Substance: THEOPHYLLINE ANHYDROUS
     Indication: Respiratory disorder
  18. PYRALGIN [Concomitant]
     Indication: Pain
     Dosage: UNK UNK, UNKNOWN
     Route: 065
     Dates: start: 20110624, end: 20110706
  19. PYRALGIN [Concomitant]
     Indication: Infection
     Dosage: UNK UNK, UNKNOWN
     Route: 065
     Dates: start: 20100506, end: 20100506
  20. PYRALGIN [Concomitant]
     Dosage: UNK UNK, UNKNOWN
     Route: 065
     Dates: start: 20100701, end: 20100701
  21. PYRALGIN [Concomitant]
     Dosage: UNK UNK, UNKNOWN
     Route: 065
     Dates: start: 20100805, end: 20100805
  22. PYRALGIN [Concomitant]
     Dosage: UNK UNK, UNKNOWN
     Route: 065
     Dates: start: 20111217, end: 201112
  23. PYRALGIN [Concomitant]
     Dosage: UNK UNK, UNKNOWN
     Route: 065
     Dates: start: 20120630, end: 201207
  24. TRIMEBUTINE MALEATE [Concomitant]
     Active Substance: TRIMEBUTINE MALEATE
     Indication: Gastrointestinal disorder
     Dosage: 5 ML, 2X/DAY:BID
     Route: 065
     Dates: start: 20100701
  25. FUROSEMIDE [Concomitant]
     Active Substance: FUROSEMIDE
     Indication: Diuretic therapy
     Dosage: UNK UNK, UNKNOWN
     Route: 065
     Dates: start: 20110624, end: 20110706
  26. FUROSEMIDE [Concomitant]
     Active Substance: FUROSEMIDE
     Dosage: UNK UNK, UNKNOWN
     Route: 065
     Dates: start: 20120628, end: 2012
  27. DEXTROSE [Concomitant]
     Active Substance: DEXTROSE
     Indication: Urinary tract infection
     Dosage: UNK UNK, UNKNOWN
     Route: 065
     Dates: start: 20110624, end: 20110706
  28. DROTAVERINE HYDROCHLORIDE [Concomitant]
     Active Substance: DROTAVERINE HYDROCHLORIDE
     Indication: Muscle spasms
     Dosage: UNK UNK, UNKNOWN
     Route: 065
     Dates: start: 20110624, end: 20110706
  29. DROTAVERINE HYDROCHLORIDE [Concomitant]
     Active Substance: DROTAVERINE HYDROCHLORIDE
     Dosage: UNK UNK, UNKNOWN
     Route: 065
     Dates: start: 20120508, end: 20120515
  30. DROTAVERINE HYDROCHLORIDE [Concomitant]
     Active Substance: DROTAVERINE HYDROCHLORIDE
     Dosage: UNK UNK, UNKNOWN
     Route: 065
     Dates: start: 20120626, end: 20120627
  31. PROBIOTICS NOS [Concomitant]
     Active Substance: PROBIOTICS NOS
     Indication: Premedication
     Dosage: UNK UNK, UNKNOWN
     Route: 065
     Dates: start: 20110624, end: 20110704
  32. PROBIOTICS NOS [Concomitant]
     Active Substance: PROBIOTICS NOS
     Dosage: UNK UNK, UNKNOWN
     Route: 065
     Dates: start: 20111123, end: 201111
  33. CEFTAZIDIME [Concomitant]
     Active Substance: CEFTAZIDIME
     Indication: Infection
     Dosage: UNK UNK, UNKNOWN
     Route: 065
     Dates: start: 20110624, end: 20110706
  34. CIPROPOL [Concomitant]
     Indication: Infection
     Dosage: 1 DF, 2X/DAY:BID
     Route: 065
     Dates: start: 20110707, end: 20110711
  35. PULMICORT TURBUHALER [Concomitant]
     Active Substance: BUDESONIDE
     Indication: Respiratory disorder
     Dosage: 500 ?G, 2X/DAY:BID
     Route: 055
     Dates: start: 20111107, end: 20111117
  36. PULMICORT TURBUHALER [Concomitant]
     Active Substance: BUDESONIDE
     Dosage: UNK UNK, UNKNOWN
     Route: 065
     Dates: start: 20111123, end: 201111
  37. PULMICORT TURBUHALER [Concomitant]
     Active Substance: BUDESONIDE
     Dosage: UNK UNK, UNKNOWN
     Route: 065
     Dates: start: 20111217, end: 201112
  38. PULMICORT TURBUHALER [Concomitant]
     Active Substance: BUDESONIDE
     Dosage: UNK
     Dates: start: 20120630, end: 201207
  39. FENOTEROL HYDROBROMIDE\IPRATROPIUM BROMIDE [Concomitant]
     Active Substance: FENOTEROL HYDROBROMIDE\IPRATROPIUM BROMIDE
     Indication: Infection
     Dosage: 15 GTT, 2X/DAY:BID
     Route: 055
     Dates: start: 20111107, end: 20111117
  40. FENOTEROL HYDROBROMIDE\IPRATROPIUM BROMIDE [Concomitant]
     Active Substance: FENOTEROL HYDROBROMIDE\IPRATROPIUM BROMIDE
     Dosage: UNK UNK, UNKNOWN
     Route: 065
     Dates: start: 20111123, end: 201111
  41. FENOTEROL HYDROBROMIDE\IPRATROPIUM BROMIDE [Concomitant]
     Active Substance: FENOTEROL HYDROBROMIDE\IPRATROPIUM BROMIDE
     Dosage: UNK UNK, UNKNOWN
     Route: 065
     Dates: start: 20111217, end: 201112
  42. FENOTEROL HYDROBROMIDE\IPRATROPIUM BROMIDE [Concomitant]
     Active Substance: FENOTEROL HYDROBROMIDE\IPRATROPIUM BROMIDE
     Dosage: UNK UNK, UNKNOWN
     Route: 065
     Dates: start: 20120630, end: 201207
  43. ASCORBIC ACID\RUTIN [Concomitant]
     Active Substance: ASCORBIC ACID\RUTIN
     Indication: Thrombocytopenia
     Dosage: 1 DF, 2X/DAY:BID
     Route: 048
     Dates: start: 20111114, end: 201111
  44. ETHAMSYLATE [Concomitant]
     Active Substance: ETHAMSYLATE
     Indication: Thrombocytopenia
     Dosage: 1 DF, 2X/DAY:BID
     Route: 048
     Dates: start: 20111114, end: 201111
  45. AFLEGAN [Concomitant]
     Indication: Lower respiratory tract infection
     Dosage: UNK UNK, UNKNOWN
     Route: 065
     Dates: start: 20111123, end: 201111
  46. FUROSEMIDE SODIUM [Concomitant]
     Active Substance: FUROSEMIDE SODIUM
     Indication: Infection
     Dosage: UNK UNK, UNKNOWN
     Route: 065
     Dates: start: 20111123, end: 201111
  47. CEFTRIAXONE [Concomitant]
     Active Substance: CEFTRIAXONE
     Indication: Infection
     Dosage: UNK UNK, UNKNOWN
     Route: 065
     Dates: start: 20111123, end: 20111202
  48. DOPAMINE [Concomitant]
     Active Substance: DOPAMINE HYDROCHLORIDE
     Indication: Lower respiratory tract infection
     Dosage: UNK UNK, UNKNOWN
     Route: 065
     Dates: start: 20111123, end: 201111
  49. IMIPENEM [Concomitant]
     Active Substance: IMIPENEM
     Indication: Infection
     Dosage: UNK UNK, UNKNOWN
     Route: 065
     Dates: start: 20111217, end: 20111227
  50. BISEPTOL [Concomitant]
     Active Substance: SULFAMETHOXAZOLE\TRIMETHOPRIM
     Indication: Infection
     Dosage: UNK UNK, UNKNOWN
     Route: 065
     Dates: start: 20111217, end: 20111219
  51. CONTROLOC [Concomitant]
     Active Substance: PANTOPRAZOLE SODIUM
     Indication: Gastrointestinal disorder
     Dosage: UNK UNK, UNKNOWN
     Route: 065
     Dates: start: 20111217, end: 201112
  52. AUGMENTIN [Concomitant]
     Active Substance: AMOXICILLIN\CLAVULANATE POTASSIUM
     Indication: Infection
     Dosage: UNK UNK, UNKNOWN
     Route: 065
     Dates: start: 20120508, end: 20121215
  53. KETONAL [Concomitant]
     Indication: Pain
     Dosage: UNK UNK, UNKNOWN
     Route: 065
     Dates: start: 20120508, end: 20120515
  54. IBUPROFEN [Concomitant]
     Active Substance: IBUPROFEN
     Indication: Pain
     Dosage: UNK UNK, UNKNOWN
     Route: 065
     Dates: start: 20120626, end: 20120627
  55. FURAGIN                            /00731801/ [Concomitant]
     Indication: Infection
     Dosage: 50 MG, 1X/DAY:QD
     Route: 065
     Dates: start: 20120626, end: 20120627
  56. POTASSIUM CHLORIDE [Concomitant]
     Active Substance: POTASSIUM CHLORIDE
     Indication: Hypokalaemia
     Dosage: UNK UNK, UNKNOWN
     Route: 065
     Dates: start: 20120630, end: 201207
  57. RECTANAL [Concomitant]
     Indication: Premedication
     Dosage: UNK UNK, UNKNOWN
     Route: 065
     Dates: start: 20120630, end: 201207
  58. METRONIDAZOLE BENZOATE [Concomitant]
     Active Substance: METRONIDAZOLE BENZOATE
     Indication: Infection
     Dosage: UNK UNK, UNKNOWN
     Route: 065
     Dates: start: 20120630, end: 201207
  59. CLONAZEPAMUM [Concomitant]
     Indication: Nervous system disorder
     Dosage: UNK UNK, UNKNOWN
     Route: 065
     Dates: start: 20120701, end: 20120702

REACTIONS (1)
  - Feeding disorder [Unknown]

NARRATIVE: CASE EVENT DATE: 20110101
